FAERS Safety Report 12622433 (Version 2)
Quarter: 2016Q3

REPORT INFORMATION
  Report Type: Report from Study
  Country: CN (occurrence: CN)
  Receive Date: 20160804
  Receipt Date: 20160908
  Transmission Date: 20161109
  Serious: Yes (Other)
  Sender: FDA-Public Use
  Company Number: PHHY2016CN104502

PATIENT
  Age: 42 Year
  Sex: Male

DRUGS (155)
  1. MYFORTIC [Suspect]
     Active Substance: MYCOPHENOLATE SODIUM
     Indication: RENAL TRANSPLANT
     Dosage: 1440 MG, QD
     Route: 048
     Dates: start: 20160507, end: 20160507
  2. BASILIXIMAB [Suspect]
     Active Substance: BASILIXIMAB
     Dosage: 20 MG, QD
     Route: 065
     Dates: start: 20160510, end: 20160510
  3. TACROLIMUS. [Suspect]
     Active Substance: TACROLIMUS
     Dosage: 6.5 MG, QD
     Route: 065
     Dates: start: 20160601, end: 20160602
  4. SODIUM CHLORIDE. [Concomitant]
     Active Substance: SODIUM CHLORIDE
     Indication: DEVICE ISSUE
     Dosage: 50 ML, BID
     Route: 042
     Dates: start: 20160507, end: 20160516
  5. SODIUM CHLORIDE. [Concomitant]
     Active Substance: SODIUM CHLORIDE
     Dosage: 50 ML, PRN
     Route: 042
     Dates: start: 20160510, end: 20160510
  6. BUDESONIDE. [Concomitant]
     Active Substance: BUDESONIDE
     Indication: PRODUCTIVE COUGH
     Dosage: 1 DF (VIAL), PRN
     Route: 055
     Dates: start: 20160507, end: 20160507
  7. CEFDINIR. [Concomitant]
     Active Substance: CEFDINIR
     Indication: ANTIINFLAMMATORY THERAPY
     Dosage: 100 MG, TID
     Route: 048
     Dates: start: 20160514, end: 20160523
  8. CEFOPERAZONE SODIUM AND SULBACTAM SODIUM [Concomitant]
     Active Substance: CEFOPERAZONE SODIUM\SULBACTAM SODIUM
     Indication: ANTIINFLAMMATORY THERAPY
     Dosage: 1500 MG, BID
     Route: 042
     Dates: start: 20160511, end: 20160513
  9. IPRATROPIUM BROMIDE. [Concomitant]
     Active Substance: IPRATROPIUM BROMIDE
     Dosage: 1 DF, PRN
     Route: 055
     Dates: start: 20160507, end: 20160507
  10. DICLOFENAC SODIUM W/LIDOCAINE HYDROCHLORIDE [Concomitant]
     Indication: CONVULSION PROPHYLAXIS
     Dosage: 1 DF, PRN
     Route: 030
     Dates: start: 20160510, end: 20160510
  11. FUROSEMIDE. [Concomitant]
     Active Substance: FUROSEMIDE
     Dosage: 120 MG, PRN
     Route: 042
     Dates: start: 20160515, end: 20160515
  12. FUROSEMIDE. [Concomitant]
     Active Substance: FUROSEMIDE
     Dosage: 160 MG, PRN
     Route: 042
     Dates: start: 20160514, end: 20160514
  13. FUROSEMIDE. [Concomitant]
     Active Substance: FUROSEMIDE
     Dosage: 240 MG, PRN
     Route: 042
     Dates: start: 20160519, end: 20160519
  14. FUROSEMIDE. [Concomitant]
     Active Substance: FUROSEMIDE
     Dosage: 40 MG, PRN
     Route: 042
     Dates: start: 20160523, end: 20160523
  15. FUROSEMIDE. [Concomitant]
     Active Substance: FUROSEMIDE
     Dosage: 80 MG, PRN
     Route: 042
     Dates: start: 20160524, end: 20160524
  16. INSULIN [Concomitant]
     Active Substance: INSULIN NOS
     Indication: BLOOD POTASSIUM INCREASED
     Dosage: 10 IU, PRN
     Route: 042
     Dates: start: 20160531, end: 20160531
  17. INSULIN [Concomitant]
     Active Substance: INSULIN NOS
     Dosage: 6 IU, PRN
     Route: 042
     Dates: start: 20160511, end: 20160511
  18. PHENOBARBITAL. [Concomitant]
     Active Substance: PHENOBARBITAL
     Indication: SEDATION
     Dosage: 100 MG, PRN
     Route: 030
     Dates: start: 20160506, end: 20160506
  19. SODIUM BICARBONATE. [Concomitant]
     Active Substance: SODIUM BICARBONATE
     Indication: ANTACID THERAPY
     Dosage: 500 MG, TID
     Route: 048
     Dates: start: 20160530, end: 20160613
  20. SODIUM LACTATE. [Concomitant]
     Active Substance: SODIUM LACTATE
     Dosage: 500 ML, PRN
     Route: 042
     Dates: start: 20160510, end: 20160510
  21. TALCID [Concomitant]
     Active Substance: HYDROTALCITE
     Indication: GASTRITIS PROPHYLAXIS
     Dosage: 1000 MG, PRN
     Route: 048
     Dates: start: 20160508, end: 20160508
  22. MYFORTIC [Suspect]
     Active Substance: MYCOPHENOLATE SODIUM
     Dosage: 1080 MG, QD
     Route: 048
     Dates: start: 20160508, end: 20160520
  23. CICLOSPORIN [Suspect]
     Active Substance: CYCLOSPORINE
     Dosage: 280 MG, QD
     Route: 042
     Dates: start: 20160513, end: 20160517
  24. PREDNISONE. [Suspect]
     Active Substance: PREDNISONE
     Indication: PRODUCT USED FOR UNKNOWN INDICATION
     Dosage: 20 MG, QD
     Route: 065
     Dates: start: 20160509
  25. SODIUM CHLORIDE. [Concomitant]
     Active Substance: SODIUM CHLORIDE
     Indication: FLUID REPLACEMENT
     Dosage: 150 ML, PRN
     Route: 042
     Dates: start: 20160506, end: 20160506
  26. SODIUM CHLORIDE. [Concomitant]
     Active Substance: SODIUM CHLORIDE
     Dosage: 50 ML, PRN
     Route: 042
     Dates: start: 20160507, end: 20160507
  27. BUDESONIDE. [Concomitant]
     Active Substance: BUDESONIDE
     Dosage: 1 DF, TID
     Route: 055
     Dates: start: 20160507, end: 20160516
  28. DICLOFENAC SODIUM W/LIDOCAINE HYDROCHLORIDE [Concomitant]
     Indication: ANALGESIC THERAPY
     Dosage: 1 DF, PRN
     Route: 030
     Dates: start: 20160511, end: 20160511
  29. DILTIAZEM HYDROCHLORIDE. [Concomitant]
     Active Substance: DILTIAZEM HYDROCHLORIDE
     Dosage: 60 MG, BID
     Route: 048
     Dates: start: 20160513, end: 20160613
  30. DOPAMINE HYDROCHLORIDE. [Concomitant]
     Active Substance: DOPAMINE HYDROCHLORIDE
     Indication: BLOOD PRESSURE INCREASED
     Dosage: 10 MG, PRN
     Route: 042
     Dates: start: 20160508, end: 20160508
  31. DOPAMINE HYDROCHLORIDE. [Concomitant]
     Active Substance: DOPAMINE HYDROCHLORIDE
     Dosage: 360 MG, PRN
     Route: 042
     Dates: start: 20160511, end: 20160511
  32. DOXAZOSIN MESILATE [Concomitant]
     Active Substance: DOXAZOSIN MESYLATE
     Dosage: 4 MG, PRN
     Route: 048
     Dates: start: 20160509, end: 20160509
  33. DOXOFYLLINE [Concomitant]
     Active Substance: DOXOFYLLINE
     Indication: COUGH
     Dosage: 200 MG, PRN
     Route: 042
     Dates: start: 20160507, end: 20160507
  34. FUROSEMIDE. [Concomitant]
     Active Substance: FUROSEMIDE
     Dosage: 80 MG, PRN
     Route: 042
     Dates: start: 20160520, end: 20160520
  35. HEPARIN SODIUM. [Concomitant]
     Active Substance: HEPARIN SODIUM
     Indication: DEVICE ISSUE
     Dosage: 6250 IU, QD
     Route: 042
     Dates: start: 20160507, end: 20160516
  36. ELECTROLYTES NOS W/GLUCOSE [Concomitant]
     Dosage: 250 ML, PRN
     Route: 042
     Dates: start: 20160507, end: 20160507
  37. MAGNESIUM ISOGLYCYRRHIZINATE [Concomitant]
     Active Substance: MAGNESIUM ISOGLYCYRRHIZINATE
     Dosage: 30 UNK, UNK
  38. WEI JIA NENG [Concomitant]
     Dosage: 1000 MG, PRN
     Route: 042
     Dates: start: 20160507, end: 20160507
  39. SODIUM LACTATE. [Concomitant]
     Active Substance: SODIUM LACTATE
     Dosage: 500 ML, PRN
     Route: 042
     Dates: start: 20160512, end: 20160512
  40. TALCID [Concomitant]
     Active Substance: HYDROTALCITE
     Dosage: 1000 MG, PRN
     Route: 048
     Dates: start: 20160529, end: 20160529
  41. VASOREL [Concomitant]
     Indication: CARDIAC DISORDER
     Dosage: 20 MG, PRN
     Route: 048
     Dates: start: 20160508, end: 20160508
  42. HUMAN ALBUMIN [Concomitant]
     Active Substance: ALBUMIN HUMAN
     Indication: SUPPLEMENTATION THERAPY
     Dosage: 10 G, PRN
     Route: 042
     Dates: start: 20160506, end: 20160506
  43. CICLOSPORIN [Suspect]
     Active Substance: CYCLOSPORINE
     Dosage: 140 MG, QD
     Route: 042
     Dates: start: 20160518, end: 20160523
  44. MYCOPHENOLATE MOFETIL. [Suspect]
     Active Substance: MYCOPHENOLATE MOFETIL
     Indication: PRODUCT USED FOR UNKNOWN INDICATION
     Dosage: 1000 MG, QD
     Route: 065
     Dates: start: 20160507, end: 20160507
  45. GLUCOSE [Concomitant]
     Active Substance: DEXTROSE
     Dosage: 500 ML, PRN
     Route: 042
     Dates: start: 20160527, end: 20160527
  46. AROTINOLOL [Concomitant]
     Active Substance: AROTINOLOL
     Indication: BLOOD PRESSURE INCREASED
     Dosage: 10 MG, BID
     Route: 048
     Dates: start: 20160508, end: 20160510
  47. AROTINOLOL [Concomitant]
     Active Substance: AROTINOLOL
     Dosage: 10 MG, PRN
     Route: 048
     Dates: start: 20160508, end: 20160508
  48. BICYCLOL [Concomitant]
     Active Substance: BICYCLOL
     Indication: TRANSAMINASES INCREASED
     Dosage: 25 MG, TID
     Route: 048
     Dates: start: 20160514, end: 20160528
  49. DOPAMINE HYDROCHLORIDE. [Concomitant]
     Active Substance: DOPAMINE HYDROCHLORIDE
     Indication: CARDIOVASCULAR INSUFFICIENCY
     Dosage: 10 MG, QD
     Route: 042
     Dates: start: 20160508, end: 20160528
  50. DOXOFYLLINE [Concomitant]
     Active Substance: DOXOFYLLINE
     Dosage: 200 MG, PRN
     Route: 042
     Dates: start: 20160507, end: 20160507
  51. FUROSEMIDE. [Concomitant]
     Active Substance: FUROSEMIDE
     Dosage: 320 MG, PRN
     Route: 042
     Dates: start: 20160513, end: 20160513
  52. FUROSEMIDE. [Concomitant]
     Active Substance: FUROSEMIDE
     Dosage: 40 MG, PRN
     Route: 042
     Dates: start: 20160525, end: 20160525
  53. LIVARACINE [Concomitant]
     Dosage: 5000 IU, PRN
     Route: 042
     Dates: start: 20160511, end: 20160511
  54. PANTOPRAZOLE [Concomitant]
     Active Substance: PANTOPRAZOLE SODIUM
     Indication: GASTRITIS PROPHYLAXIS
     Dosage: 40 MG, BID
     Route: 042
     Dates: start: 20160507, end: 20160510
  55. PANTOPRAZOLE [Concomitant]
     Active Substance: PANTOPRAZOLE SODIUM
     Dosage: 40 MG, BID
     Route: 042
     Dates: start: 20160510, end: 20160516
  56. PANTOPRAZOLE [Concomitant]
     Active Substance: PANTOPRAZOLE SODIUM
     Dosage: 40 MG, PRN
     Route: 042
     Dates: start: 20160507, end: 20160507
  57. PANTOPRAZOLE [Concomitant]
     Active Substance: PANTOPRAZOLE SODIUM
     Dosage: 40 MG, QD
     Route: 048
     Dates: start: 20160520, end: 20160528
  58. SODIUM LACTATE. [Concomitant]
     Active Substance: SODIUM LACTATE
     Dosage: 2000 ML, UNK
     Route: 042
     Dates: start: 20160508, end: 20160508
  59. MYFORTIC [Suspect]
     Active Substance: MYCOPHENOLATE SODIUM
     Dosage: 540 MG, QD
     Route: 048
     Dates: start: 20160603
  60. CICLOSPORIN [Suspect]
     Active Substance: CYCLOSPORINE
     Indication: KIDNEY TRANSPLANT REJECTION
     Dosage: 250 MG, QD
     Route: 042
     Dates: start: 20160510, end: 20160512
  61. SODIUM CHLORIDE. [Concomitant]
     Active Substance: SODIUM CHLORIDE
     Dosage: 1000 ML, PRN
     Route: 042
     Dates: start: 20160507, end: 20160507
  62. ALBUMIN [Concomitant]
     Active Substance: ALBUMIN HUMAN
     Dosage: 10 G, PRN
     Route: 042
     Dates: start: 20160507, end: 20160507
  63. BICYCLOL [Concomitant]
     Active Substance: BICYCLOL
     Dosage: 20 MG, TID
     Route: 048
     Dates: start: 20160613
  64. IPRATROPIUM BROMIDE. [Concomitant]
     Active Substance: IPRATROPIUM BROMIDE
     Indication: PRODUCTIVE COUGH
     Dosage: 1 DF, TID
     Route: 055
     Dates: start: 20160507, end: 20160516
  65. SULFAMETHOXAZOLE [Concomitant]
     Active Substance: SULFAMETHOXAZOLE
     Indication: INFECTION PROPHYLAXIS
     Dosage: 2 DF, AT THE NOON OF TUESDAY AND FRIDAY
     Route: 048
     Dates: start: 20160613
  66. DOXOFYLLINE [Concomitant]
     Active Substance: DOXOFYLLINE
     Indication: WHEEZING
     Dosage: 200 MG, BID
     Route: 042
     Dates: start: 20160510, end: 20160513
  67. DOXOFYLLINE [Concomitant]
     Active Substance: DOXOFYLLINE
     Dosage: 200 MG, BID
     Route: 042
     Dates: start: 20160507, end: 20160510
  68. FUROSEMIDE. [Concomitant]
     Active Substance: FUROSEMIDE
     Indication: POLYURIA
     Dosage: 120 MG, PRN
     Route: 042
     Dates: start: 20160507, end: 20160507
  69. FUROSEMIDE. [Concomitant]
     Active Substance: FUROSEMIDE
     Dosage: 160 MG, PRN
     Route: 042
     Dates: start: 20160508, end: 20160508
  70. FUROSEMIDE. [Concomitant]
     Active Substance: FUROSEMIDE
     Dosage: 40 MG, PRN
     Route: 042
     Dates: start: 20160511, end: 20160511
  71. FUROSEMIDE. [Concomitant]
     Active Substance: FUROSEMIDE
     Dosage: 40 MG, PRN
     Route: 042
     Dates: start: 20160518, end: 20160518
  72. FUROSEMIDE. [Concomitant]
     Active Substance: FUROSEMIDE
     Dosage: 80 MG, PRN
     Route: 042
     Dates: start: 20160528, end: 20160528
  73. FUROSEMIDE. [Concomitant]
     Active Substance: FUROSEMIDE
     Dosage: 80 MG, PRN
     Route: 042
     Dates: start: 20160529, end: 20160529
  74. ERYTHROPOIETIN HUMAN [Concomitant]
     Indication: RED BLOOD CELL ABNORMALITY
     Dosage: 9999 IU, PRN
     Route: 042
     Dates: start: 20160512, end: 20160512
  75. LEVOCARNITINE. [Concomitant]
     Active Substance: LEVOCARNITINE
     Dosage: 1 DF, QD
     Route: 042
     Dates: start: 20160510, end: 20160514
  76. LIVARACINE [Concomitant]
     Indication: ANTICOAGULANT THERAPY
     Dosage: 5000 IU, QD
     Route: 042
  77. FAT EMULSION NOS [Concomitant]
     Active Substance: EGG PHOSPHOLIPIDS\SAFFLOWER OIL\SOYBEAN OIL
     Indication: NUTRITIONAL SUPPLEMENTATION
     Dosage: 250 ML, QD
     Route: 042
     Dates: start: 20160507, end: 20160510
  78. MUCOSOLVAN [Concomitant]
     Active Substance: AMBROXOL HYDROCHLORIDE
     Indication: PRODUCTIVE COUGH
     Dosage: 15 MG, PRN
     Route: 055
     Dates: start: 20160507, end: 20160507
  79. MUCOSOLVAN [Concomitant]
     Active Substance: AMBROXOL HYDROCHLORIDE
     Dosage: 15 MG, TID
     Route: 042
     Dates: start: 20160516, end: 20160519
  80. NITROGLYCERIN. [Concomitant]
     Active Substance: NITROGLYCERIN
     Indication: ANGINA PECTORIS
     Dosage: 0.5 MG, PRN
     Route: 048
     Dates: start: 20160508, end: 20160508
  81. PANTOPRAZOLE [Concomitant]
     Active Substance: PANTOPRAZOLE SODIUM
     Dosage: 40 MG, PRN
     Route: 042
     Dates: start: 20160506, end: 20160506
  82. WEI JIA NENG [Concomitant]
     Dosage: 2 G, QD
     Route: 042
     Dates: start: 20160507, end: 20160510
  83. GLUTATHIONE [Concomitant]
     Active Substance: GLUTATHIONE
     Indication: LIVER DISORDER
     Dosage: 1500 MG, PRN
     Route: 042
     Dates: start: 20160507, end: 20160507
  84. GLUTATHIONE [Concomitant]
     Active Substance: GLUTATHIONE
     Dosage: 1500 MG, QD
     Route: 042
     Dates: start: 20160510, end: 20160514
  85. SCOPOLAMINE HYDROBROMIDE. [Concomitant]
     Active Substance: SCOPOLAMINE HYDROBROMIDE
     Indication: GASTROINTESTINAL DISORDER
     Dosage: 300 UG, PRN
     Route: 030
     Dates: start: 20160506, end: 20160506
  86. TALCID [Concomitant]
     Active Substance: HYDROTALCITE
     Dosage: 1000 MG, TID
     Route: 048
     Dates: start: 20160530, end: 20160613
  87. EXFORGE [Concomitant]
     Active Substance: AMLODIPINE BESYLATE\VALSARTAN
     Indication: BLOOD PRESSURE DECREASED
     Dosage: 1 DF, PRN
     Route: 048
     Dates: start: 20160509, end: 20160509
  88. BASILIXIMAB [Suspect]
     Active Substance: BASILIXIMAB
     Indication: PRODUCT USED FOR UNKNOWN INDICATION
     Dosage: 20 MG, QD
     Route: 065
     Dates: start: 20160507, end: 20160507
  89. METHYLPREDNISOLONE. [Suspect]
     Active Substance: METHYLPREDNISOLONE
     Dosage: 400 MG, QD
     Route: 065
     Dates: start: 20160509, end: 20160509
  90. METHYLPREDNISOLONE. [Suspect]
     Active Substance: METHYLPREDNISOLONE
     Dosage: 500 MG, QD
     Route: 065
     Dates: start: 20160511, end: 20160511
  91. TACROLIMUS. [Suspect]
     Active Substance: TACROLIMUS
     Dosage: 7 MG, QD
     Route: 065
     Dates: start: 20160523, end: 20160531
  92. TACROLIMUS. [Suspect]
     Active Substance: TACROLIMUS
     Dosage: 7 MG, QD
     Route: 065
     Dates: start: 20160603, end: 20160611
  93. GLUCOSE [Concomitant]
     Active Substance: DEXTROSE
     Indication: BLOOD POTASSIUM INCREASED
     Dosage: 250 ML, PRN
     Route: 042
     Dates: start: 20160531, end: 20160531
  94. GLUCOSE [Concomitant]
     Active Substance: DEXTROSE
     Dosage: 20 ML, UNK
     Route: 042
     Dates: start: 20160531, end: 20160531
  95. AROTINOLOL [Concomitant]
     Active Substance: AROTINOLOL
     Dosage: 140 MG, UNK
     Route: 048
     Dates: start: 20160520, end: 20160520
  96. BUDESONIDE. [Concomitant]
     Active Substance: BUDESONIDE
     Dosage: 1 DF, TID
     Route: 055
     Dates: start: 20160516, end: 20160519
  97. CALCIUM [Concomitant]
     Active Substance: CALCIUM
     Indication: MINERAL SUPPLEMENTATION
     Dosage: 10 ML, PRN
     Route: 042
     Dates: start: 20160528, end: 20160528
  98. DOPAMINE HYDROCHLORIDE. [Concomitant]
     Active Substance: DOPAMINE HYDROCHLORIDE
     Dosage: 360 MG, PRN
     Route: 042
     Dates: start: 20160512, end: 20160512
  99. FUROSEMIDE. [Concomitant]
     Active Substance: FUROSEMIDE
     Dosage: 160 MG, PRN
     Route: 042
     Dates: start: 20160517, end: 20160517
  100. FUROSEMIDE. [Concomitant]
     Active Substance: FUROSEMIDE
     Dosage: 40 MG, PRN
     Route: 042
     Dates: start: 20160512, end: 20160512
  101. FUROSEMIDE. [Concomitant]
     Active Substance: FUROSEMIDE
     Dosage: 40 MG, PRN
     Route: 042
     Dates: start: 20160531, end: 20160531
  102. FAT EMULSION NOS [Concomitant]
     Active Substance: EGG PHOSPHOLIPIDS\SAFFLOWER OIL\SOYBEAN OIL
     Dosage: 250 ML, PRN
     Route: 042
     Dates: start: 20160507, end: 20160507
  103. MUCOPOLYSACCHARIDE POLYSULFURIC ACID ESTER [Concomitant]
     Dosage: 14 G, PRN
     Route: 065
     Dates: start: 20160525, end: 20160525
  104. MUCOSOLVAN [Concomitant]
     Active Substance: AMBROXOL HYDROCHLORIDE
     Dosage: 15 MG, TID
     Route: 055
     Dates: start: 20160507, end: 20160516
  105. PANTOPRAZOLE [Concomitant]
     Active Substance: PANTOPRAZOLE SODIUM
     Dosage: 40 MG, QD
     Route: 048
     Dates: start: 20160530, end: 20160613
  106. GLUTATHIONE [Concomitant]
     Active Substance: GLUTATHIONE
     Dosage: 1200 MG, QD
     Route: 042
     Dates: start: 20160520, end: 20160528
  107. SODIUM LACTATE. [Concomitant]
     Active Substance: SODIUM LACTATE
     Dosage: 500 ML, PRN
     Route: 042
     Dates: start: 20160511, end: 20160511
  108. METHYLPREDNISOLONE. [Suspect]
     Active Substance: METHYLPREDNISOLONE
     Indication: PRODUCT USED FOR UNKNOWN INDICATION
     Dosage: 500 MG, QD
     Route: 065
     Dates: start: 20160506, end: 20160509
  109. TACROLIMUS. [Suspect]
     Active Substance: TACROLIMUS
     Indication: PRODUCT USED FOR UNKNOWN INDICATION
     Dosage: 5 MG, QD
     Route: 065
     Dates: start: 20160507, end: 20160510
  110. TACROLIMUS. [Suspect]
     Active Substance: TACROLIMUS
     Dosage: 7 MG, QD
     Route: 065
     Dates: start: 20160612
  111. SODIUM CHLORIDE. [Concomitant]
     Active Substance: SODIUM CHLORIDE
     Dosage: 1500 ML, PRN
     Route: 042
     Dates: start: 20160508, end: 20160508
  112. CEFDINIR. [Concomitant]
     Active Substance: CEFDINIR
     Indication: INFECTION PROPHYLAXIS
  113. CEPHAZOLINE SODIUM [Concomitant]
     Active Substance: CEFAZOLIN SODIUM
     Indication: SKIN TEST
     Dosage: 500 MG, PRN
     Route: 065
     Dates: start: 20160507, end: 20160507
  114. CRAVIT [Concomitant]
     Active Substance: LEVOFLOXACIN
     Indication: INFECTION PROPHYLAXIS
  115. DOPAMINE HYDROCHLORIDE. [Concomitant]
     Active Substance: DOPAMINE HYDROCHLORIDE
     Dosage: 540 MG, PRN
     Route: 042
     Dates: start: 20160510, end: 20160510
  116. FUROSEMIDE. [Concomitant]
     Active Substance: FUROSEMIDE
     Dosage: 40 MG, PRN
     Route: 042
     Dates: start: 20160516, end: 20160516
  117. FUROSEMIDE. [Concomitant]
     Active Substance: FUROSEMIDE
     Dosage: 40 MG, PRN
     Route: 042
     Dates: start: 20160526, end: 20160526
  118. FUROSEMIDE. [Concomitant]
     Active Substance: FUROSEMIDE
     Dosage: 80 MG, PRN
     Route: 042
     Dates: start: 20160522, end: 20160522
  119. ELECTROLYTES NOS W/GLUCOSE [Concomitant]
     Indication: SUPPLEMENTATION THERAPY
     Dosage: 250 ML, QD
     Route: 042
     Dates: start: 20160507, end: 20160507
  120. LEVOCARNITINE. [Concomitant]
     Active Substance: LEVOCARNITINE
     Indication: CARDIAC DISORDER
     Dosage: 1 DF, QD
     Route: 042
     Dates: start: 20160507, end: 20160510
  121. MAGNESIUM ISOGLYCYRRHIZINATE [Concomitant]
     Active Substance: MAGNESIUM ISOGLYCYRRHIZINATE
     Indication: LIVER DISORDER
     Dosage: 30 ML, QD
     Route: 042
     Dates: start: 20160507, end: 20160510
  122. MUCOSOLVAN [Concomitant]
     Active Substance: AMBROXOL HYDROCHLORIDE
     Dosage: 15 MG, TID
     Route: 042
     Dates: start: 20160516, end: 20160519
  123. JILIFEN [Concomitant]
     Indication: GRANULOCYTE COUNT INCREASED
     Dosage: 150 UG, PRN
     Route: 042
     Dates: start: 20160603, end: 20160603
  124. GLUTATHIONE [Concomitant]
     Active Substance: GLUTATHIONE
     Dosage: 1500 MG, QD
     Route: 042
     Dates: start: 20160507, end: 20160510
  125. SODIUM LACTATE. [Concomitant]
     Active Substance: SODIUM LACTATE
     Indication: FLUID IMBALANCE
     Dosage: 1000 ML, PRN
     Route: 042
     Dates: start: 20160507, end: 20160507
  126. TALCID [Concomitant]
     Active Substance: HYDROTALCITE
     Dosage: 1000 MG, TID
     Route: 048
     Dates: start: 20160508, end: 20160528
  127. ULINASTATIN [Concomitant]
     Active Substance: ULINASTATIN
     Indication: CIRCULATORY COLLAPSE
     Dosage: 2000 IU, PRN
     Route: 042
     Dates: start: 20160509, end: 20160509
  128. ALOSTIN//ALPROSTADIL [Concomitant]
     Dosage: 10 UG, PRN
     Route: 042
     Dates: start: 20160507, end: 20160507
  129. ALOSTIN//ALPROSTADIL [Concomitant]
     Dosage: 250 ML, PRN
     Route: 042
     Dates: start: 20160507, end: 20160507
  130. CEFOTIAM HYDROCHLORIDE [Concomitant]
     Active Substance: CEFOTIAM HYDROCHLORIDE
     Indication: INFECTION PROPHYLAXIS
     Dosage: 2000 MG, BID
     Route: 042
     Dates: start: 20160510, end: 20160511
  131. COENZYME [Concomitant]
     Active Substance: UBIDECARENONE
     Indication: SUPPLEMENTATION THERAPY
     Dosage: 2 DF, QD
     Route: 042
     Dates: start: 20160507, end: 20160508
  132. IPRATROPIUM BROMIDE. [Concomitant]
     Active Substance: IPRATROPIUM BROMIDE
     Dosage: 1 DF, TID
     Route: 055
     Dates: start: 20160516, end: 20160519
  133. CRAVIT [Concomitant]
     Active Substance: LEVOFLOXACIN
     Indication: ANTIINFLAMMATORY THERAPY
     Dosage: 100 ML, PRN
     Route: 042
     Dates: start: 20160506, end: 20160506
  134. DOXAZOSIN MESILATE [Concomitant]
     Active Substance: DOXAZOSIN MESYLATE
     Indication: BLOOD PRESSURE INCREASED
     Dosage: 4 MG, QD
     Route: 048
     Dates: start: 20160601, end: 20160613
  135. DOXAZOSIN MESILATE [Concomitant]
     Active Substance: DOXAZOSIN MESYLATE
     Dosage: 4 MG, QD
     Route: 048
     Dates: start: 20160613
  136. FUROSEMIDE. [Concomitant]
     Active Substance: FUROSEMIDE
     Dosage: 120 MG, PRN
     Route: 042
     Dates: start: 20160509, end: 20160509
  137. FUROSEMIDE. [Concomitant]
     Active Substance: FUROSEMIDE
     Dosage: 200 MG, PRN
     Route: 042
     Dates: start: 20160510, end: 20160510
  138. INSULIN [Concomitant]
     Active Substance: INSULIN NOS
     Indication: BLOOD GLUCOSE INCREASED
     Dosage: 20 IU, PRN
     Route: 042
     Dates: start: 20160528, end: 20160528
  139. PANTOPRAZOLE [Concomitant]
     Active Substance: PANTOPRAZOLE SODIUM
     Dosage: 40 MG, QD
     Route: 042
     Dates: start: 20160516, end: 20160524
  140. PANTOPRAZOLE [Concomitant]
     Active Substance: PANTOPRAZOLE SODIUM
     Dosage: 40 MG, QD
     Route: 048
     Dates: start: 20160613
  141. WEI JIA NENG [Concomitant]
     Indication: CARDIOVASCULAR DISORDER
     Dosage: 1000 MG, QD
     Route: 042
     Dates: start: 20160510, end: 20160514
  142. POLYENE PHOSPHATIDYLCHOLINE [Concomitant]
     Active Substance: PHOSPHOLIPID
     Indication: LIVER DISORDER
     Dosage: 10 ML, QD
     Route: 042
     Dates: start: 20160515, end: 20160520
  143. MYFORTIC [Suspect]
     Active Substance: MYCOPHENOLATE SODIUM
     Dosage: 720 MG, QD
     Route: 048
     Dates: start: 20160521, end: 20160602
  144. GLUCOSE [Concomitant]
     Active Substance: DEXTROSE
     Dosage: 40 ML, PRN
     Route: 042
     Dates: start: 20160528, end: 20160528
  145. ALBUMIN [Concomitant]
     Active Substance: ALBUMIN HUMAN
     Indication: SUPPLEMENTATION THERAPY
     Dosage: 10 MG, BID
     Route: 042
     Dates: start: 20160507, end: 20160516
  146. ALOSTIN//ALPROSTADIL [Concomitant]
     Indication: CARDIOVASCULAR INSUFFICIENCY
     Dosage: 10 UG, QD
     Route: 042
     Dates: start: 20160507, end: 20160516
  147. CEFOPERAZONE SODIUM AND SULBACTAM SODIUM [Concomitant]
     Active Substance: CEFOPERAZONE SODIUM\SULBACTAM SODIUM
     Indication: INFECTION PROPHYLAXIS
  148. CEFOTIAM HYDROCHLORIDE [Concomitant]
     Active Substance: CEFOTIAM HYDROCHLORIDE
     Indication: ANTIINFLAMMATORY THERAPY
     Dosage: 2000 MG, BID
     Route: 042
     Dates: start: 20160507, end: 20160510
  149. DILTIAZEM HYDROCHLORIDE. [Concomitant]
     Active Substance: DILTIAZEM HYDROCHLORIDE
     Indication: DRUG LEVEL DECREASED
     Dosage: 30 MG, BID
     Route: 048
     Dates: start: 20160508, end: 20160513
  150. DILTIAZEM HYDROCHLORIDE. [Concomitant]
     Active Substance: DILTIAZEM HYDROCHLORIDE
     Dosage: 30 MG, PRN
     Route: 048
     Dates: start: 20160508, end: 20160508
  151. DILTIAZEM HYDROCHLORIDE. [Concomitant]
     Active Substance: DILTIAZEM HYDROCHLORIDE
     Dosage: 30 MG, BID
     Route: 048
     Dates: start: 20160613
  152. FUROSEMIDE. [Concomitant]
     Active Substance: FUROSEMIDE
     Dosage: 80 MG, PRN
     Route: 042
     Dates: start: 20160521, end: 20160521
  153. ERYTHROPOIETIN HUMAN [Concomitant]
     Dosage: 9999 IU, PRN
     Route: 042
     Dates: start: 20160525, end: 20160525
  154. LEVOCARNITINE. [Concomitant]
     Active Substance: LEVOCARNITINE
     Dosage: 1 DF, PRN
     Route: 042
     Dates: start: 20160507, end: 20160507
  155. MUCOPOLYSACCHARIDE POLYSULFURIC ACID ESTER [Concomitant]
     Indication: PHLEBITIS
     Dosage: 14 G, UNK
     Route: 065
     Dates: start: 20160520, end: 20160520

REACTIONS (11)
  - Kidney transplant rejection [Recovered/Resolved]
  - High density lipoprotein decreased [Unknown]
  - Chest discomfort [Recovering/Resolving]
  - Pain in extremity [Recovering/Resolving]
  - Peripheral swelling [Recovering/Resolving]
  - Aspartate aminotransferase decreased [Unknown]
  - Blood glucose increased [Unknown]
  - Lymphocyte count decreased [Recovered/Resolved]
  - Upper respiratory tract infection [Recovering/Resolving]
  - Haemoglobin decreased [Unknown]
  - Product use issue [Unknown]

NARRATIVE: CASE EVENT DATE: 20160509
